FAERS Safety Report 7201326-9 (Version None)
Quarter: 2010Q4

REPORT INFORMATION
  Report Type: 
  Country: None (occurrence: None)
  Receive Date: 20101229
  Receipt Date: 20101214
  Transmission Date: 20110411
  Serious: Yes (Other)
  Sender: FDA-Public Use
  Company Number: US-RANBAXY-2010RR-40725

PATIENT
  Sex: Female

DRUGS (3)
  1. LEVAQUIN [Suspect]
     Indication: INFECTION
     Dosage: UNK
     Route: 048
     Dates: start: 20040801, end: 20070327
  2. CIPROFLOXACIN [Suspect]
     Indication: INFECTION
     Dosage: 500 MG, UNK
  3. CIPROFLOXACIN [Suspect]
     Dosage: UNK

REACTIONS (3)
  - RASH [None]
  - SWELLING [None]
  - TENDON RUPTURE [None]
